FAERS Safety Report 12101596 (Version 2)
Quarter: 2016Q2

REPORT INFORMATION
  Report Type: Spontaneous
  Country: US (occurrence: US)
  Receive Date: 20160222
  Receipt Date: 20160419
  Transmission Date: 20160815
  Serious: No
  Sender: FDA-Public Use
  Company Number: US-009507513-1602USA010071

PATIENT
  Age: 47 Year
  Sex: Female
  Weight: 78.5 kg

DRUGS (1)
  1. GRASTEK [Suspect]
     Active Substance: PHLEUM PRATENSE POLLEN
     Indication: SEASONAL ALLERGY
     Dosage: ONE TABLET (2800 BAU) / ONCE DAILY
     Route: 060
     Dates: start: 20160210, end: 20160216

REACTIONS (4)
  - Stress [Recovered/Resolved]
  - Tremor [Recovered/Resolved]
  - Syncope [Recovered/Resolved]
  - Musculoskeletal stiffness [Recovered/Resolved]

NARRATIVE: CASE EVENT DATE: 20160216
